FAERS Safety Report 6544756-0 (Version None)
Quarter: 2010Q1

REPORT INFORMATION
  Report Type: 
  Country: None (occurrence: None)
  Receive Date: 20100121
  Receipt Date: 20100117
  Transmission Date: 20100710
  Serious: Yes (Other)
  Sender: FDA-Public Use
  Company Number: US-BAYER-201010708BCC

PATIENT
  Sex: Female
  Weight: 100 kg

DRUGS (1)
  1. ALEVE [Suspect]
     Indication: DRUG USE FOR UNKNOWN INDICATION
     Dosage: TOTAL DAILY DOSE: 4400 MG  UNIT DOSE: 220 MG
     Route: 048

REACTIONS (1)
  - ABDOMINAL PAIN [None]
